FAERS Safety Report 8058545-1 (Version None)
Quarter: 2012Q1

REPORT INFORMATION
  Report Type: 
  Country: None (occurrence: None)
  Receive Date: 20120120
  Receipt Date: 20120112
  Transmission Date: 20120608
  Serious: Yes (Other)
  Sender: FDA-Public Use
  Company Number: US-JNJFOC-20111109496

PATIENT
  Sex: Male
  Weight: 168.29 kg

DRUGS (17)
  1. WELCHOL [Concomitant]
     Route: 048
  2. STELARA [Suspect]
     Indication: PSORIASIS
     Route: 058
     Dates: start: 20110408, end: 20110801
  3. DIOVAN [Concomitant]
     Route: 048
  4. ATARAX [Concomitant]
     Dosage: 1-2 TABLETS AT BEDTIME
     Route: 048
  5. KENALOG [Concomitant]
     Dosage: AS NEEDED
  6. TRILIPIX [Concomitant]
     Route: 048
  7. NIASPAN [Concomitant]
     Route: 048
  8. NORVASC [Concomitant]
     Route: 048
  9. CRESTOR [Concomitant]
     Route: 048
  10. METFORMIN HCL [Concomitant]
     Route: 048
  11. MULTI-VITAMINS [Concomitant]
     Route: 048
  12. HUMULIN 70/30 [Concomitant]
     Route: 058
  13. TRIAMCINOLONE [Concomitant]
  14. APRESOLINE [Concomitant]
     Route: 048
  15. TENORMIN [Concomitant]
     Route: 048
  16. ALTACE [Concomitant]
     Route: 048
  17. ASPIRIN [Concomitant]
     Route: 048

REACTIONS (1)
  - CELLULITIS [None]
